FAERS Safety Report 24347027 (Version 2)
Quarter: 2024Q4

REPORT INFORMATION
  Report Type: Spontaneous
  Country: US (occurrence: US)
  Receive Date: 20240921
  Receipt Date: 20241009
  Transmission Date: 20250114
  Serious: No
  Sender: MERCK
  Company Number: US-009507513-2409USA005966

PATIENT
  Sex: Male
  Weight: 112.02 kg

DRUGS (2)
  1. VERQUVO [Suspect]
     Active Substance: VERICIGUAT
     Indication: Cardiovascular event prophylaxis
     Dosage: 2.5MG ONCE DAILY
     Route: 048
     Dates: start: 202408, end: 202408
  2. VERQUVO [Suspect]
     Active Substance: VERICIGUAT
     Dosage: 2.5 MILLIGRAM, QD
     Route: 048
     Dates: start: 20240816, end: 20240902

REACTIONS (3)
  - Dyspnoea [Recovered/Resolved]
  - Dyspnoea [Unknown]
  - Rash [Recovering/Resolving]

NARRATIVE: CASE EVENT DATE: 20240101
